FAERS Safety Report 13631765 (Version 1)
Quarter: 2017Q2

REPORT INFORMATION
  Report Type: Report from Study
  Country: US (occurrence: US)
  Receive Date: 20170608
  Receipt Date: 20170608
  Transmission Date: 20170830
  Serious: Yes (Death)
  Sender: FDA-Public Use
  Company Number: US-ACTELION-A-US2016-138679

PATIENT
  Age: 73 Year
  Sex: Female
  Weight: 50.34 kg

DRUGS (4)
  1. TYVASO [Concomitant]
     Active Substance: TREPROSTINIL
     Indication: PRODUCT USED FOR UNKNOWN INDICATION
     Dosage: 13 BREATHS
     Route: 065
  2. TYVASO [Concomitant]
     Active Substance: TREPROSTINIL
     Dosage: 12 BREATHS , QID
     Route: 065
  3. SILDENAFIL. [Concomitant]
     Active Substance: SILDENAFIL
  4. OPSUMIT [Suspect]
     Active Substance: MACITENTAN
     Indication: PULMONARY ARTERIAL HYPERTENSION
     Dosage: 10 MG, QD
     Route: 048
     Dates: start: 20150504

REACTIONS (9)
  - Oxygen consumption increased [Unknown]
  - Pulmonary hypertension [Unknown]
  - Bacterial infection [Unknown]
  - Dyspnoea exertional [Unknown]
  - Pruritus [Unknown]
  - Death [Fatal]
  - Dyspnoea [Unknown]
  - Headache [Unknown]
  - Peripheral swelling [Recovered/Resolved]

NARRATIVE: CASE EVENT DATE: 20170215
